FAERS Safety Report 22158531 (Version 1)
Quarter: 2023Q1

REPORT INFORMATION
  Report Type: Spontaneous
  Country: US (occurrence: US)
  Receive Date: 20230331
  Receipt Date: 20230331
  Transmission Date: 20230418
  Serious: No
  Sender: FDA-Public Use
  Company Number: US-PCCINC-2023-PEL-000167

PATIENT

DRUGS (3)
  1. GABLOFEN [Suspect]
     Active Substance: BACLOFEN
     Indication: Pain
     Dosage: UNK
     Route: 037
  2. FENTANYL [Suspect]
     Active Substance: FENTANYL
     Indication: Pain
     Dosage: UNK
     Route: 037
  3. CLONIDINE [Suspect]
     Active Substance: CLONIDINE
     Indication: Pain
     Dosage: UNK
     Route: 037

REACTIONS (2)
  - Off label use [Unknown]
  - Product use in unapproved indication [Unknown]
